FAERS Safety Report 10926845 (Version 1)
Quarter: 2015Q1

REPORT INFORMATION
  Report Type: Report from Study
  Country: US (occurrence: US)
  Receive Date: 20150318
  Receipt Date: 20150318
  Transmission Date: 20150721
  Serious: Yes (Other)
  Sender: FDA-Public Use
  Company Number: US-BAYER-2015-038468

PATIENT
  Sex: Male

DRUGS (1)
  1. RADIUM 223 [Suspect]
     Active Substance: RADIUM RA-223 DICHLORIDE
     Indication: HORMONE-REFRACTORY PROSTATE CANCER
     Dosage: 50 KBQ/KG EVERY 4 WEEKS FOR 6 TOTAL CYCLES
     Route: 042

REACTIONS (1)
  - Haematotoxicity [None]
